FAERS Safety Report 5428427-X (Version None)
Quarter: 2007Q3

REPORT INFORMATION
  Report Type: 
  Country: None (occurrence: None)
  Receive Date: 20070823
  Receipt Date: 20070816
  Transmission Date: 20080115
  Serious: Yes (Other)
  Sender: FDA-Public Use
  Company Number: 2007-03820

PATIENT
  Age: 75 Year
  Sex: Female

DRUGS (6)
  1. HYDROMORPHONE HCL [Suspect]
     Indication: POSTOPERATIVE ANALGESIA
     Dosage: 1 MG, Q4H PRN, INTRAVENOUS
     Route: 042
     Dates: start: 20070101, end: 20070101
  2. MORPHINE (MORPHINE) INJECTION [Concomitant]
  3. FUROSEMIDE [Concomitant]
  4. ANGIOTENSIN-CONVERTING ENZYME INHIBITOR [Concomitant]
  5. HMG COA REDUCTASE INHIBITORS [Concomitant]
  6. ASPIRIN [Concomitant]

REACTIONS (2)
  - ANAPHYLACTOID REACTION [None]
  - STRIDOR [None]
